FAERS Safety Report 4323268-9 (Version None)
Quarter: 2004Q1

REPORT INFORMATION
  Report Type: 
  Country: None (occurrence: None)
  Receive Date: 20040323
  Receipt Date: 20040323
  Transmission Date: 20041129
  Serious: Yes (Other)
  Sender: FDA-Public Use
  Company Number: None

PATIENT
  Age: 72 Year
  Sex: Male
  Weight: 68 kg

DRUGS (14)
  1. PREDNISONE [Suspect]
     Indication: TEMPORAL ARTERITIS
     Dosage: 60 MG , DAILY, ORAL
     Route: 048
     Dates: start: 20030130, end: 20040603
  2. ISOSORBIDE DINITRATE [Concomitant]
  3. SENNOSIDES [Concomitant]
  4. POTASSIUM CHLORIDE [Concomitant]
  5. FUROSEMIDE [Concomitant]
  6. GABAPENTIN [Concomitant]
  7. FOLIC ACID [Concomitant]
  8. METHOTREXATE NA [Concomitant]
  9. GLYBURIDE [Concomitant]
  10. ZZCALCITONIN, SALMON [Concomitant]
  11. MORPHINE [Concomitant]
  12. FENTANYL [Concomitant]
  13. RABEPRAZOLE NA [Concomitant]
  14. DILTIAZEM (TIAZAC) [Concomitant]

REACTIONS (8)
  - AGITATION [None]
  - CONFUSIONAL STATE [None]
  - DELIRIUM [None]
  - DELUSION [None]
  - EXCITABILITY [None]
  - HALLUCINATION [None]
  - INSOMNIA [None]
  - NERVOUSNESS [None]
